FAERS Safety Report 5872330-8 (Version None)
Quarter: 2008Q3

REPORT INFORMATION
  Report Type: 
  Country: None (occurrence: None)
  Receive Date: 20080905
  Receipt Date: 20080901
  Transmission Date: 20090109
  Serious: Yes (Death)
  Sender: FDA-Public Use
  Company Number: GB-TEVA-176788ISR

PATIENT
  Age: 31 Year
  Sex: Female
  Weight: 55.5 kg

DRUGS (8)
  1. AMITRIPTYLINE HCL [Suspect]
  2. DIAZEPAM [Suspect]
  3. VALPROIC ACID [Suspect]
  4. BUSPIRONE HCL [Suspect]
  5. INSULIN [Suspect]
  6. INSULIN DETEMIR [Suspect]
  7. PREGABALIN [Suspect]
  8. QUETIAPINE FUMARATE [Suspect]

REACTIONS (3)
  - CARDIAC DEATH [None]
  - DIABETES MELLITUS INADEQUATE CONTROL [None]
  - GENERALISED ANXIETY DISORDER [None]
